FAERS Safety Report 15378241 (Version 2)
Quarter: 2018Q4

REPORT INFORMATION
  Report Type: Spontaneous
  Country: JP (occurrence: JP)
  Receive Date: 20180913
  Receipt Date: 20181004
  Transmission Date: 20190204
  Serious: No
  Sender: FDA-Public Use
  Company Number: JP-SHIONOGI, INC.-2018000478

PATIENT
  Age: 42 Year
  Sex: Female
  Weight: 48 kg

DRUGS (10)
  1. OXYCONTIN [Concomitant]
     Active Substance: OXYCODONE HYDROCHLORIDE
     Dosage: UNK
     Route: 065
     Dates: start: 20170227
  2. MYSLEE [Concomitant]
     Active Substance: ZOLPIDEM TARTRATE
     Dosage: 5 MG, QD
     Route: 048
     Dates: start: 20170522
  3. SYMPROIC [Suspect]
     Active Substance: NALDEMEDINE
     Dosage: 0.6 MG, QD
     Route: 048
     Dates: start: 20180310, end: 20180312
  4. FENTOS [Concomitant]
     Active Substance: FENTANYL
     Indication: PAIN
     Dosage: 2 MG, QD
     Route: 065
     Dates: start: 20180129
  5. PURSENNID                          /00142207/ [Concomitant]
     Active Substance: SENNA LEAF
     Route: 048
  6. LYRICA [Concomitant]
     Active Substance: PREGABALIN
     Dosage: 25 MG, BID
     Route: 048
     Dates: start: 20171113
  7. NEXIUM [Concomitant]
     Active Substance: ESOMEPRAZOLE MAGNESIUM
     Dosage: 20 MG, QD
     Route: 065
     Dates: start: 20170522
  8. SYMPROIC [Suspect]
     Active Substance: NALDEMEDINE
     Indication: CONSTIPATION
     Dosage: 0.2 MG, QD
     Route: 048
     Dates: start: 20180305
  9. OXYCONTIN [Concomitant]
     Active Substance: OXYCODONE HYDROCHLORIDE
     Dosage: 60 MG, BID
     Route: 048
     Dates: start: 20180209
  10. NAIXAN                             /00256201/ [Concomitant]
     Active Substance: NAPROXEN
     Dosage: 200 MG, TID
     Route: 048
     Dates: start: 20170227

REACTIONS (5)
  - Drug withdrawal syndrome [Recovered/Resolved]
  - Intentional overdose [Unknown]
  - Vomiting [Recovered/Resolved]
  - Hyperhidrosis [Recovered/Resolved]
  - Nausea [Recovered/Resolved]

NARRATIVE: CASE EVENT DATE: 20180310
